FAERS Safety Report 11651897 (Version 2)
Quarter: 2016Q1

REPORT INFORMATION
  Report Type: Report from Study
  Country: US (occurrence: US)
  Receive Date: 20151022
  Receipt Date: 20160114
  Transmission Date: 20160525
  Serious: No
  Sender: FDA-Public Use
  Company Number: US-AMGEN-USASL2015108842

PATIENT
  Age: 65 Year
  Sex: Male

DRUGS (1)
  1. ENBREL [Suspect]
     Active Substance: ETANERCEPT
     Indication: ANKYLOSING SPONDYLITIS
     Dosage: 50 MG, QWK
     Route: 065
     Dates: start: 201407, end: 201512

REACTIONS (9)
  - Drug ineffective [Unknown]
  - Injection site urticaria [Unknown]
  - Malaise [Unknown]
  - Headache [Unknown]
  - Injection site swelling [Unknown]
  - Arthralgia [Unknown]
  - No therapeutic response [Unknown]
  - Herpes zoster [Unknown]
  - Pain in extremity [Unknown]
